FAERS Safety Report 9020025 (Version 1)
Quarter: 2013Q1

REPORT INFORMATION
  Report Type: Spontaneous
  Country: US (occurrence: US)
  Receive Date: 20130119
  Receipt Date: 20130119
  Transmission Date: 20140127
  Serious: No
  Sender: FDA-Public Use
  Company Number: US-ALLERGAN-1210650US

PATIENT
  Age: 40 Year
  Sex: Female

DRUGS (6)
  1. BOTOX? [Suspect]
     Indication: OROPHARYNGEAL SPASM
     Dosage: UNK, SINGLE
     Dates: start: 20120720, end: 20120720
  2. PLAQUENIL [Concomitant]
     Indication: SYSTEMIC LUPUS ERYTHEMATOSUS
     Dosage: 200 MG, BID
     Dates: start: 201206
  3. EVOXAC [Concomitant]
     Indication: SALIVA ALTERED
     Dosage: UNK UNK, PRN
     Dates: start: 201206
  4. FLEXERIL [Concomitant]
     Indication: MUSCLE SPASMS
     Dosage: 5 MG, QPM
  5. DONNATAL [Concomitant]
     Indication: ABDOMINAL PAIN UPPER
     Dosage: UNK UNK, TID
  6. SYSTANE [Concomitant]
     Indication: DRY EYE
     Dosage: UNK UNK, PRN

REACTIONS (6)
  - Headache [Not Recovered/Not Resolved]
  - Eructation [Not Recovered/Not Resolved]
  - Dysgeusia [Not Recovered/Not Resolved]
  - Oesophageal disorder [Not Recovered/Not Resolved]
  - Off label use [Unknown]
  - Dyspnoea [Not Recovered/Not Resolved]
